FAERS Safety Report 11445930 (Version 1)
Quarter: 2015Q3

REPORT INFORMATION
  Report Type: Spontaneous
  Country: US (occurrence: US)
  Receive Date: 20150831
  Receipt Date: 20150831
  Transmission Date: 20151125
  Serious: No
  Sender: FDA-Public Use
  Company Number: US-ELI_LILLY_AND_COMPANY-US200809000491

PATIENT
  Sex: Female

DRUGS (2)
  1. CYMBALTA [Suspect]
     Active Substance: DULOXETINE HYDROCHLORIDE
     Indication: FIBROMYALGIA
     Dosage: 30 MG, UNK
  2. CYMBALTA [Suspect]
     Active Substance: DULOXETINE HYDROCHLORIDE
     Dosage: 60 MG, DAILY (1/D)

REACTIONS (8)
  - Hyperhidrosis [Not Recovered/Not Resolved]
  - Dysgeusia [Unknown]
  - Nausea [Recovered/Resolved]
  - Abdominal discomfort [Unknown]
  - Blood glucose decreased [Unknown]
  - Insomnia [Unknown]
  - Drug ineffective [Unknown]
  - Decreased appetite [Unknown]

NARRATIVE: CASE EVENT DATE: 2008
